FAERS Safety Report 24263921 (Version 1)
Quarter: 2024Q3

REPORT INFORMATION
  Report Type: Spontaneous
  Country: CN (occurrence: CN)
  Receive Date: 20240829
  Receipt Date: 20240829
  Transmission Date: 20241017
  Serious: Yes (Other)
  Sender: ASTELLAS
  Company Number: CN-ASTELLAS-2024-AER-000106

PATIENT
  Age: 55 Year
  Sex: Male
  Weight: 65 kg

DRUGS (2)
  1. PROGRAF [Suspect]
     Active Substance: TACROLIMUS
     Indication: Glomerulonephritis membranous
     Route: 048
     Dates: end: 20240716
  2. PREDNISONE [Concomitant]
     Active Substance: PREDNISONE
     Indication: Product used for unknown indication
     Route: 065

REACTIONS (3)
  - Cholecystitis acute [Recovering/Resolving]
  - Off label use [Unknown]
  - Immunosuppressant drug level increased [Unknown]

NARRATIVE: CASE EVENT DATE: 20240716
